FAERS Safety Report 4428660-X (Version None)
Quarter: 2004Q3

REPORT INFORMATION
  Report Type: 
  Country: None (occurrence: None)
  Receive Date: 20040818
  Receipt Date: 20030916
  Transmission Date: 20050211
  Serious: No
  Sender: FDA-Public Use
  Company Number: US-BRISTOL-MYERS SQUIBB COMPANY-12386207

PATIENT
  Age: 32 Year
  Sex: Male
  Weight: 113 kg

DRUGS (3)
  1. TEQUIN [Suspect]
     Indication: PNEUMONIA
     Route: 048
     Dates: start: 20030908, end: 20030913
  2. ADVAIR DISKUS 100/50 [Concomitant]
     Indication: HYPERTENSION
  3. DIOVAN [Concomitant]
     Indication: HYPERTENSION

REACTIONS (6)
  - BACK PAIN [None]
  - FEELING ABNORMAL [None]
  - HYPERHIDROSIS [None]
  - HYPOAESTHESIA [None]
  - PARAESTHESIA [None]
  - TREMOR [None]
